FAERS Safety Report 14283021 (Version 1)
Quarter: 2017Q4

REPORT INFORMATION
  Report Type: Spontaneous
  Country: PT (occurrence: PT)
  Receive Date: 20171213
  Receipt Date: 20171213
  Transmission Date: 20180321
  Serious: Yes (Hospitalization)
  Sender: FDA-Public Use
  Company Number: PT-TEVA-2017-PT-834059

PATIENT
  Age: 66 Year
  Sex: Female

DRUGS (2)
  1. OXALIPLATIN. [Suspect]
     Active Substance: OXALIPLATIN
     Indication: RECTAL CANCER
     Dosage: 245 MG
     Route: 065
     Dates: start: 20160111, end: 20160923
  2. FLUOROURACIL. [Suspect]
     Active Substance: FLUOROURACIL
     Indication: RECTAL CANCER
     Dosage: 1 DF, UNK
     Route: 048
     Dates: start: 20160111, end: 20160524

REACTIONS (3)
  - Balance disorder [Recovering/Resolving]
  - Neuropathy peripheral [Recovering/Resolving]
  - Undersensing [Recovering/Resolving]

NARRATIVE: CASE EVENT DATE: 20160411
